FAERS Safety Report 7478735-6 (Version None)
Quarter: 2011Q2

REPORT INFORMATION
  Report Type: 
  Country: None (occurrence: None)
  Receive Date: 20110513
  Receipt Date: 20110428
  Transmission Date: 20111010
  Serious: Yes (Other)
  Sender: FDA-Public Use
  Company Number: JP-ROCHE-718259

PATIENT
  Sex: Female
  Weight: 35.6 kg

DRUGS (29)
  1. ACTEMRA [Suspect]
     Route: 041
     Dates: start: 20090403, end: 20090403
  2. ACTEMRA [Suspect]
     Route: 041
     Dates: start: 20090722, end: 20090722
  3. ACTEMRA [Suspect]
     Route: 041
     Dates: start: 20090930, end: 20090930
  4. ACTEMRA [Suspect]
     Route: 041
     Dates: start: 20091028, end: 20091028
  5. ACTEMRA [Suspect]
     Indication: RHEUMATOID ARTHRITIS
     Route: 041
     Dates: start: 20080618, end: 20080618
  6. ACTEMRA [Suspect]
     Route: 041
     Dates: start: 20080910, end: 20080910
  7. ACTEMRA [Suspect]
     Route: 041
     Dates: start: 20090107, end: 20090107
  8. ACTEMRA [Suspect]
     Route: 041
     Dates: start: 20090505, end: 20090505
  9. ACTEMRA [Suspect]
     Route: 041
     Dates: start: 20090624, end: 20090624
  10. ACTEMRA [Suspect]
     Route: 041
     Dates: start: 20090826, end: 20090826
  11. ACTEMRA [Suspect]
     Route: 041
     Dates: start: 20100120, end: 20100120
  12. ACTEMRA [Suspect]
     Route: 041
     Dates: start: 20081008, end: 20081008
  13. ACTEMRA [Suspect]
     Route: 041
     Dates: start: 20100217, end: 20100217
  14. ACTEMRA [Suspect]
     Route: 041
     Dates: start: 20081105, end: 20081105
  15. ACTEMRA [Suspect]
     Route: 041
  16. ACTEMRA [Suspect]
     Route: 041
     Dates: start: 20100519, end: 20100519
  17. CELCOX [Concomitant]
     Route: 048
     Dates: start: 20070627, end: 20080702
  18. ACTEMRA [Suspect]
     Route: 041
     Dates: start: 20081203, end: 20081203
  19. ACTEMRA [Suspect]
     Route: 041
     Dates: start: 20090304, end: 20090304
  20. ACTEMRA [Suspect]
     Route: 041
     Dates: start: 20091222, end: 20091222
  21. ACTEMRA [Suspect]
     Route: 041
     Dates: start: 20080716, end: 20080716
  22. ACTEMRA [Suspect]
     Route: 041
     Dates: start: 20080813, end: 20080813
  23. ACTEMRA [Suspect]
     Route: 041
     Dates: start: 20100317, end: 20100317
  24. ACTEMRA [Suspect]
     Route: 041
     Dates: start: 20100616, end: 20100616
  25. ACTEMRA [Suspect]
     Route: 041
     Dates: start: 20090204, end: 20090204
  26. ACTEMRA [Suspect]
     Route: 041
     Dates: start: 20090526, end: 20090526
  27. ACTEMRA [Suspect]
     Route: 041
     Dates: start: 20091125, end: 20091125
  28. PREDNISOLONE [Concomitant]
     Dosage: FORM PERORAL AGENT
     Route: 048
     Dates: start: 20080711
  29. LANSOPRAZOLE [Concomitant]
     Dosage: DRUG REPORTED AS TAPIZOL (LANSOPRAZOLE)
     Route: 048
     Dates: start: 20060711

REACTIONS (1)
  - SQUAMOUS CELL CARCINOMA [None]
